FAERS Safety Report 9878018 (Version 2)
Quarter: 2014Q2

REPORT INFORMATION
  Report Type: Spontaneous
  Country: US (occurrence: US)
  Receive Date: 20140206
  Receipt Date: 20140402
  Transmission Date: 20141212
  Serious: Yes (Hospitalization, Other)
  Sender: FDA-Public Use
  Company Number: US-BAYER-2014-017636

PATIENT
  Age: 21 Year
  Sex: Male

DRUGS (1)
  1. HELIXATE FS [Suspect]

REACTIONS (2)
  - Haemorrhage [Unknown]
  - Haemorrhage [Unknown]
